FAERS Safety Report 8784495 (Version 2)
Quarter: 2012Q4

REPORT INFORMATION
  Report Type: 
  Country: US (occurrence: US)
  Receive Date: 20120913
  Receipt Date: 20121109
  Transmission Date: 20130627
  Serious: Yes (Other)
  Sender: FDA-Public Use
  Company Number: US-PFIZER INC-2012223626

PATIENT
  Sex: Female

DRUGS (1)
  1. GEODON [Suspect]
     Dosage: 80 mg, 2x/day
     Route: 048

REACTIONS (3)
  - Derealisation [Unknown]
  - Dyspepsia [Unknown]
  - Nausea [Unknown]
